FAERS Safety Report 6208745-8 (Version None)
Quarter: 2009Q2

REPORT INFORMATION
  Report Type: 
  Country: None (occurrence: None)
  Receive Date: 20090522
  Receipt Date: 20090203
  Transmission Date: 20091009
  Serious: No
  Sender: FDA-Public Use
  Company Number: 8042427

PATIENT
  Age: 47 Year
  Sex: Female
  Weight: 97.7 kg

DRUGS (26)
  1. CIMZIA [Suspect]
     Indication: CROHN'S DISEASE
     Dosage: 400 MG SC
     Route: 058
     Dates: start: 20081219
  2. REQUIP [Concomitant]
  3. SINGULAIR [Concomitant]
  4. SYNTHROID [Concomitant]
  5. TOPAMAX [Concomitant]
  6. VESICARE [Concomitant]
  7. VITAMIN B-12 [Concomitant]
  8. CALCIUM [Concomitant]
  9. LOVAZA [Concomitant]
  10. FLAX SEED OIL [Concomitant]
  11. GARLIC [Concomitant]
  12. VITAMIN D [Concomitant]
  13. VITAMIN B COMPLEX CAP [Concomitant]
  14. ACIPHEX [Concomitant]
  15. AMITRIPTYLINE [Concomitant]
  16. CYMBALTA [Concomitant]
  17. DOXEPIN [Concomitant]
  18. IRON [Concomitant]
  19. FLUOXETINE HCL [Concomitant]
  20. GEMFIBROZIL [Concomitant]
  21. HYDROXYZINE [Concomitant]
  22. NAPROSYN [Concomitant]
  23. NEURONTIN [Concomitant]
  24. POTASSIUM CHLORIDE [Concomitant]
  25. VITAMIN TAB [Concomitant]
  26. RANITIDINE [Concomitant]

REACTIONS (1)
  - INFLUENZA LIKE ILLNESS [None]
